FAERS Safety Report 4902959-2 (Version None)
Quarter: 2006Q1

REPORT INFORMATION
  Report Type: 
  Country: None (occurrence: None)
  Receive Date: 20060207
  Receipt Date: 20051025
  Transmission Date: 20060701
  Serious: Yes (Other)
  Sender: FDA-Public Use
  Company Number: DE-NOVOPROD-248042

PATIENT
  Age: 25 Year
  Sex: Female
  Weight: 60 kg

DRUGS (5)
  1. LEVEMIR [Suspect]
     Indication: DIABETES MELLITUS INSULIN-DEPENDENT
     Dosage: 22 U, QD
     Route: 058
     Dates: start: 20040928, end: 20041207
  2. LEVEMIR [Suspect]
     Dosage: 16 U, QD
     Route: 058
     Dates: start: 20041207
  3. NOVORAPID [Concomitant]
     Indication: DIABETES MELLITUS INSULIN-DEPENDENT
     Dosage: 26 U, QD
     Route: 058
  4. NOVORAPID [Concomitant]
     Dosage: 28 UNK, UNK
  5. RAMIPRIL [Concomitant]
     Dates: start: 20020101

REACTIONS (4)
  - ABDOMINAL PAIN [None]
  - DIARRHOEA [None]
  - HYPOGLYCAEMIA [None]
  - TREMOR [None]
